FAERS Safety Report 21166362 (Version 1)
Quarter: 2022Q3

REPORT INFORMATION
  Report Type: Report from Study
  Country: US (occurrence: US)
  Receive Date: 20220803
  Receipt Date: 20220803
  Transmission Date: 20221027
  Serious: Yes (Other)
  Sender: FDA-Public Use
  Company Number: US-SEATTLE GENETICS-2021SGN06278

PATIENT
  Sex: Female
  Weight: 104.4 kg

DRUGS (3)
  1. TUCATINIB [Suspect]
     Active Substance: TUCATINIB
     Indication: Invasive breast carcinoma
     Dosage: UNK
     Dates: start: 20211028, end: 20211109
  2. TUCATINIB [Suspect]
     Active Substance: TUCATINIB
     Indication: Invasive breast carcinoma
     Dosage: UNK
     Dates: start: 20211028, end: 20211109
  3. ADO-TRASTUZUMAB EMTANSINE [Suspect]
     Active Substance: ADO-TRASTUZUMAB EMTANSINE
     Indication: Invasive breast carcinoma
     Dosage: UNK MG
     Route: 048
     Dates: start: 20211028

REACTIONS (1)
  - Radiation skin injury [Recovered/Resolved]

NARRATIVE: CASE EVENT DATE: 20211130
